FAERS Safety Report 16983885 (Version 2)
Quarter: 2019Q4

REPORT INFORMATION
  Report Type: Spontaneous
  Country: US (occurrence: US)
  Receive Date: 20191101
  Receipt Date: 20191106
  Transmission Date: 20200122
  Serious: Yes (Death, Other)
  Sender: FDA-Public Use
  Company Number: US-PFIZER INC-2019470394

PATIENT
  Age: 69 Year
  Sex: Female

DRUGS (1)
  1. CRIZOTINIB [Suspect]
     Active Substance: CRIZOTINIB
     Indication: OVARIAN CANCER METASTATIC
     Dosage: UNK

REACTIONS (4)
  - Acute hepatic failure [Fatal]
  - Product use in unapproved indication [Unknown]
  - Encephalopathy [Fatal]
  - Off label use [Unknown]
